FAERS Safety Report 21551109 (Version 1)
Quarter: 2022Q4

REPORT INFORMATION
  Report Type: Spontaneous
  Country: US (occurrence: None)
  Receive Date: 20221102
  Receipt Date: 20221102
  Transmission Date: 20230112
  Serious: Yes (Death)
  Sender: FDA-Public Use
  Company Number: None

PATIENT
  Age: 72 Year
  Sex: Male

DRUGS (1)
  1. PIRFENIDONE [Suspect]
     Active Substance: PIRFENIDONE
     Indication: Interstitial lung disease
     Dosage: 801MG THREE TIMES DAILY BY MOUTH?
     Route: 048
     Dates: start: 20220523

REACTIONS (2)
  - Death [None]
  - Disease progression [None]

NARRATIVE: CASE EVENT DATE: 20221021
